APPROVED DRUG PRODUCT: VALSARTAN
Active Ingredient: VALSARTAN
Strength: 40MG
Dosage Form/Route: TABLET;ORAL
Application: A205536 | Product #001 | TE Code: AB
Applicant: ALKEM LABORATORIES LTD
Approved: Mar 12, 2019 | RLD: No | RS: No | Type: RX